FAERS Safety Report 22203048 (Version 1)
Quarter: 2023Q2

REPORT INFORMATION
  Report Type: Spontaneous
  Country: US (occurrence: None)
  Receive Date: 20230412
  Receipt Date: 20230412
  Transmission Date: 20230722
  Serious: No
  Sender: FDA-Public Use
  Company Number: None

PATIENT
  Age: 40 Year
  Sex: Female
  Weight: 90 kg

DRUGS (5)
  1. XOLAIR [Suspect]
     Active Substance: OMALIZUMAB
     Indication: Urticaria
     Dosage: OTHER FREQUENCY : Q MONTH;?
     Route: 058
     Dates: start: 20220628, end: 20230405
  2. XOLAIR [Suspect]
     Active Substance: OMALIZUMAB
     Indication: Sneezing
  3. VITAMINS [Concomitant]
     Active Substance: VITAMINS
  4. CETIRIZINE [Concomitant]
     Active Substance: CETIRIZINE HYDROCHLORIDE
  5. ALBUTEROL [Concomitant]
     Active Substance: ALBUTEROL

REACTIONS (5)
  - Vasculitis [None]
  - Hypoacusis [None]
  - Rash [None]
  - Malaise [None]
  - Deafness unilateral [None]

NARRATIVE: CASE EVENT DATE: 20230405
